FAERS Safety Report 5841138-1 (Version None)
Quarter: 2008Q3

REPORT INFORMATION
  Report Type: 
  Country: None (occurrence: None)
  Receive Date: 20080811
  Receipt Date: 20080811
  Transmission Date: 20090109
  Serious: Yes (Hospitalization)
  Sender: FDA-Public Use
  Company Number: None

PATIENT
  Sex: Female
  Weight: 64.5 kg

DRUGS (2)
  1. FLUOROURACIL [Suspect]
     Dosage: 3655 MG
  2. LEUCOVORIN CALCIUM [Suspect]
     Dosage: 170 MG

REACTIONS (15)
  - BLOOD SODIUM INCREASED [None]
  - DECREASED APPETITE [None]
  - DEHYDRATION [None]
  - DIARRHOEA [None]
  - HYPERTENSION [None]
  - HYPOKALAEMIA [None]
  - HYPOTHYROIDISM [None]
  - METABOLIC ACIDOSIS [None]
  - NAUSEA [None]
  - NEUTROPENIA [None]
  - RENAL FAILURE ACUTE [None]
  - URINARY TRACT INFECTION [None]
  - UROSEPSIS [None]
  - VOMITING [None]
  - WHITE BLOOD CELL COUNT DECREASED [None]
